FAERS Safety Report 20962746 (Version 1)
Quarter: 2022Q2

REPORT INFORMATION
  Report Type: Spontaneous
  Country: US (occurrence: US)
  Receive Date: 20220615
  Receipt Date: 20220615
  Transmission Date: 20220721
  Serious: No
  Sender: FDA-Public Use
  Company Number: US-BTGSP-US-BTGSP-21-0122

PATIENT
  Age: 68 Year
  Sex: Male
  Weight: 149.3 kg

DRUGS (1)
  1. VORAXAZE [Suspect]
     Active Substance: GLUCARPIDASE
     Indication: Toxicity to various agents
     Dosage: 6 VIALS
     Route: 065

REACTIONS (4)
  - Off label use [Unknown]
  - Underdose [Unknown]
  - Product supply issue [Unknown]
  - Laboratory test interference [Unknown]
